FAERS Safety Report 8003166-X (Version None)
Quarter: 2011Q4

REPORT INFORMATION
  Report Type: 
  Country: None (occurrence: None)
  Receive Date: 20111222
  Receipt Date: 20111213
  Transmission Date: 20120403
  Serious: Yes (Other)
  Sender: FDA-Public Use
  Company Number: PHHY2011CO109132

PATIENT
  Sex: Female

DRUGS (2)
  1. TEGRETOL [Suspect]
     Dosage: 1200 MG, UNK
     Route: 048
  2. TEGRETOL [Suspect]
     Indication: PARTIAL SEIZURES
     Dosage: 800 MG WITH INTERVAL OF EIGHT HOURS AND 800 MG PER DAY
     Route: 048

REACTIONS (1)
  - MENTAL IMPAIRMENT [None]
